FAERS Safety Report 6087917-X (Version None)
Quarter: 2009Q1

REPORT INFORMATION
  Report Type: 
  Country: None (occurrence: None)
  Receive Date: 20090219
  Receipt Date: 20090219
  Transmission Date: 20090719
  Serious: No
  Sender: FDA-Public Use
  Company Number: None

PATIENT
  Age: 61 Year
  Sex: Female
  Weight: 53.5244 kg

DRUGS (11)
  1. NITROFURANTOIN [Suspect]
     Dosage: 100MG BID PO 1 DOSE
     Route: 048
  2. LAMICTAL [Concomitant]
  3. PIROXICAM [Concomitant]
  4. ACETAMINOPHEN [Concomitant]
  5. ACTONEL [Concomitant]
  6. BENZTROPINE [Concomitant]
  7. CALCIUM [Concomitant]
  8. DEPAKOTE [Concomitant]
  9. DETROL [Concomitant]
  10. DIAZEPAM [Concomitant]
  11. FLUPHENAZINE [Concomitant]

REACTIONS (2)
  - ABDOMINAL PAIN [None]
  - VOMITING [None]
